FAERS Safety Report 7743020-1 (Version None)
Quarter: 2011Q3

REPORT INFORMATION
  Report Type: 
  Country: None (occurrence: None)
  Receive Date: 20110908
  Receipt Date: 20110908
  Transmission Date: 20111222
  Serious: Yes (Hospitalization, Disabling, Other)
  Sender: FDA-Public Use
  Company Number: None

PATIENT
  Age: 74 Year
  Sex: Female
  Weight: 68.9467 kg

DRUGS (1)
  1. FOSAMAX [Suspect]
     Indication: OSTEOPOROSIS
     Dosage: 1 PILL DAILY ORAL
     Route: 048
     Dates: start: 19960101, end: 20100304

REACTIONS (4)
  - STRESS FRACTURE [None]
  - PAIN IN EXTREMITY [None]
  - FEMUR FRACTURE [None]
  - FALL [None]
